FAERS Safety Report 12864704 (Version 2)
Quarter: 2016Q4

REPORT INFORMATION
  Report Type: Spontaneous
  Country: IT (occurrence: IT)
  Receive Date: 20161020
  Receipt Date: 20161103
  Transmission Date: 20170207
  Serious: Yes (Other)
  Sender: FDA-Public Use
  Company Number: PHHY2016IT141833

PATIENT
  Age: 75 Year
  Sex: Female
  Weight: 60 kg

DRUGS (3)
  1. TASIGNA [Suspect]
     Active Substance: NILOTINIB
     Indication: CHRONIC MYELOID LEUKAEMIA
     Dosage: 400 MG, QD
     Route: 048
     Dates: start: 20140927, end: 20161010
  2. ATORVASTATIN [Concomitant]
     Active Substance: ATORVASTATIN
     Indication: HYPERCHOLESTEROLAEMIA
     Dosage: 40 MG, QD
     Route: 048
     Dates: start: 20140901
  3. NOVONORM [Concomitant]
     Active Substance: REPAGLINIDE
     Indication: HYPERGLYCAEMIA
     Dosage: 0.5 OT, TID
     Route: 048
     Dates: start: 20141014

REACTIONS (11)
  - Tri-iodothyronine free decreased [Unknown]
  - Intermittent claudication [Unknown]
  - Hypokinesia [Unknown]
  - Pain in extremity [Unknown]
  - Arteriosclerosis [Unknown]
  - Low density lipoprotein increased [Unknown]
  - Blood albumin increased [Unknown]
  - Peripheral artery occlusion [Unknown]
  - Platelet count decreased [Unknown]
  - Alpha 2 globulin increased [Unknown]
  - Paraesthesia [Unknown]

NARRATIVE: CASE EVENT DATE: 20161010
